FAERS Safety Report 10207943 (Version 1)
Quarter: 2014Q2

REPORT INFORMATION
  Report Type: Spontaneous
  Country: US (occurrence: None)
  Receive Date: 20140527
  Receipt Date: 20140527
  Transmission Date: 20141212
  Serious: No
  Sender: FDA-Public Use
  Company Number: None

PATIENT
  Age: 46 Year
  Sex: Female

DRUGS (3)
  1. METFORMIN [Suspect]
     Indication: DIABETES MELLITUS
     Dates: start: 20110521, end: 20120516
  2. INSULIN [Concomitant]
  3. REQUIP [Concomitant]

REACTIONS (4)
  - Cholestasis [None]
  - Inflammation [None]
  - Fibrosis [None]
  - Liver disorder [None]
